FAERS Safety Report 5619478-0 (Version None)
Quarter: 2008Q1

REPORT INFORMATION
  Report Type: 
  Country: None (occurrence: None)
  Receive Date: 20080114
  Receipt Date: 20070403
  Transmission Date: 20080703
  Serious: Yes (Hospitalization)
  Sender: FDA-Public Use
  Company Number: FEI2007-0533

PATIENT
  Age: 34 Year
  Sex: Female
  Weight: 85.2762 kg

DRUGS (3)
  1. PARAGARD T 380A [Suspect]
     Indication: CONTRACEPTION
     Dosage: INTRA-UTERINE
     Route: 015
     Dates: start: 20030614, end: 20070331
  2. ADVIL [Concomitant]
  3. MULTIVITAMIN [Concomitant]

REACTIONS (4)
  - ABDOMINAL ADHESIONS [None]
  - ABDOMINAL PAIN [None]
  - MENORRHAGIA [None]
  - RUPTURED ECTOPIC PREGNANCY [None]
